FAERS Safety Report 15707451 (Version 2)
Quarter: 2019Q3

REPORT INFORMATION
  Report Type: Spontaneous
  Country: GB (occurrence: GB)
  Receive Date: 20181211
  Receipt Date: 20190925
  Transmission Date: 20191004
  Serious: Yes (Other)
  Sender: FDA-Public Use
  Company Number: GB-SUN PHARMACEUTICAL INDUSTRIES LTD-2018RR-193070

PATIENT
  Age: 19 Year
  Sex: Male

DRUGS (4)
  1. SULPIRIDE [Suspect]
     Active Substance: SULPIRIDE
     Dosage: 400 MILLIGRAM, BID
     Route: 065
  2. SULPIRIDE [Suspect]
     Active Substance: SULPIRIDE
     Indication: ATTENTION DEFICIT/HYPERACTIVITY DISORDER
     Dosage: 200 MILLIGRAM, DAILY
     Route: 065
  3. RISPERIDONE. [Suspect]
     Active Substance: RISPERIDONE
     Indication: ATTENTION DEFICIT/HYPERACTIVITY DISORDER
     Dosage: 0.5 MILLIGRAM
     Route: 065
  4. ARIPIPRAZOLE. [Suspect]
     Active Substance: ARIPIPRAZOLE
     Indication: ATTENTION DEFICIT/HYPERACTIVITY DISORDER
     Dosage: DOSES HIGHER THAN 2 MG DAILY
     Route: 065

REACTIONS (3)
  - Sedation [Recovering/Resolving]
  - Oculogyric crisis [Recovered/Resolved]
  - Extrapyramidal disorder [Recovering/Resolving]
